FAERS Safety Report 13877729 (Version 1)
Quarter: 2017Q3

REPORT INFORMATION
  Report Type: Spontaneous
  Country: FR (occurrence: FR)
  Receive Date: 20170817
  Receipt Date: 20170817
  Transmission Date: 20171127
  Serious: Yes (Other)
  Sender: FDA-Public Use
  Company Number: PHHY2017FR118843

PATIENT
  Age: 7 Year
  Sex: Female

DRUGS (1)
  1. CYCLOPENTOLATE HCL [Suspect]
     Active Substance: CYCLOPENTOLATE HYDROCHLORIDE
     Indication: MYDRIASIS
     Dosage: 32 GTT, QH WITHIN ONE HOUR (IN TOTAL)
     Route: 047
     Dates: start: 20170719, end: 20170719

REACTIONS (7)
  - Tachycardia [Recovered/Resolved]
  - Medication error [Recovered/Resolved]
  - Abdominal pain upper [Recovered/Resolved]
  - Dyspnoea [Recovered/Resolved]
  - Drug prescribing error [Recovered/Resolved]
  - Balance disorder [Recovered/Resolved]
  - Somnolence [Recovered/Resolved]

NARRATIVE: CASE EVENT DATE: 20170719
